FAERS Safety Report 22170362 (Version 1)
Quarter: 2023Q2

REPORT INFORMATION
  Report Type: Spontaneous
  Country: US (occurrence: None)
  Receive Date: 20230404
  Receipt Date: 20230404
  Transmission Date: 20230722
  Serious: Yes (Hospitalization, Other)
  Sender: FDA-Public Use
  Company Number: US-MLMSERVICE-20230317-4169329-1

PATIENT
  Age: 63 Year
  Sex: Male

DRUGS (4)
  1. CISPLATIN [Suspect]
     Active Substance: CISPLATIN
     Indication: Bladder transitional cell carcinoma
     Dosage: UNKNOWN
     Route: 065
     Dates: start: 202001, end: 202007
  2. VINBLASTINE [Concomitant]
     Active Substance: VINBLASTINE
     Indication: Bladder transitional cell carcinoma
     Dosage: UNKNOWN
     Route: 065
     Dates: start: 202001, end: 202007
  3. METHOTREXATE [Concomitant]
     Active Substance: METHOTREXATE
     Indication: Bladder transitional cell carcinoma
     Dosage: UNKNOWN
     Route: 065
     Dates: start: 202001, end: 202007
  4. DOXORUBICIN [Concomitant]
     Active Substance: DOXORUBICIN
     Indication: Bladder transitional cell carcinoma
     Dosage: UNKNOWN
     Route: 065
     Dates: start: 202001, end: 202007

REACTIONS (4)
  - Hyperkalaemia [Unknown]
  - Metabolic acidosis [Unknown]
  - Renal salt-wasting syndrome [Unknown]
  - Acute kidney injury [Unknown]

NARRATIVE: CASE EVENT DATE: 20201001
